FAERS Safety Report 5634902-5 (Version None)
Quarter: 2008Q1

REPORT INFORMATION
  Report Type: 
  Country: None (occurrence: None)
  Receive Date: 20080221
  Receipt Date: 20080221
  Transmission Date: 20080703
  Serious: Yes (Hospitalization)
  Sender: FDA-Public Use
  Company Number: None

PATIENT
  Sex: Male
  Weight: 93.7131 kg

DRUGS (2)
  1. GEMCITABINE [Suspect]
     Indication: PANCREATIC CARCINOMA
     Dosage: 2060MG ONCE IV
     Route: 042
     Dates: start: 20080213
  2. LAPATINIB 1500MG GLAXOSMITHKLINE [Suspect]
     Dosage: 1500 MG ONCE A DAY PO (ORAL)
     Route: 048
     Dates: start: 20080213

REACTIONS (4)
  - ADENOCARCINOMA PANCREAS [None]
  - DEHYDRATION [None]
  - PERITONITIS BACTERIAL [None]
  - RENAL FAILURE ACUTE [None]
